FAERS Safety Report 5872789-6 (Version None)
Quarter: 2008Q3

REPORT INFORMATION
  Report Type: 
  Country: None (occurrence: None)
  Receive Date: 20080905
  Receipt Date: 20080829
  Transmission Date: 20090109
  Serious: Yes (Hospitalization)
  Sender: FDA-Public Use
  Company Number: US-PFIZER INC-2005121995

PATIENT
  Sex: Female
  Weight: 53.5 kg

DRUGS (4)
  1. SU-011,248 [Suspect]
     Indication: GASTROINTESTINAL STROMAL TUMOUR
     Route: 048
     Dates: start: 20041215, end: 20050817
  2. PROCRIT [Concomitant]
     Route: 058
  3. ATIVAN [Concomitant]
     Route: 048
  4. COMPAZINE [Concomitant]
     Route: 048

REACTIONS (3)
  - HYPERCALCAEMIA [None]
  - LYMPHOPENIA [None]
  - THROMBOCYTOPENIA [None]
